FAERS Safety Report 4438458-4 (Version None)
Quarter: 2004Q3

REPORT INFORMATION
  Report Type: 
  Country: None (occurrence: None)
  Receive Date: 20040728
  Receipt Date: 20040323
  Transmission Date: 20050211
  Serious: No
  Sender: FDA-Public Use
  Company Number: USA040362944

PATIENT
  Sex: Female

DRUGS (2)
  1. STRATTERA [Suspect]
     Dosage: 120 MG DAY
     Dates: start: 20040101
  2. WELLBUTRIN [Concomitant]

REACTIONS (1)
  - PRESCRIBED OVERDOSE [None]
